FAERS Safety Report 16057957 (Version 1)
Quarter: 2019Q1

REPORT INFORMATION
  Report Type: Spontaneous
  Country: RU (occurrence: RU)
  Receive Date: 20190311
  Receipt Date: 20190311
  Transmission Date: 20190418
  Serious: Yes (Other)
  Sender: FDA-Public Use
  Company Number: RU-ALEXION PHARMACEUTICALS INC.-A201903446

PATIENT
  Sex: Female

DRUGS (3)
  1. SOLIRIS [Suspect]
     Active Substance: ECULIZUMAB
     Indication: OFF LABEL USE
  2. SOLIRIS [Suspect]
     Active Substance: ECULIZUMAB
     Indication: ATYPICAL HAEMOLYTIC URAEMIC SYNDROME
     Dosage: UNK
     Route: 065
     Dates: start: 201810
  3. SOLIRIS [Suspect]
     Active Substance: ECULIZUMAB
     Indication: KIDNEY TRANSPLANT REJECTION
     Dosage: 1200 MG, Q2W
     Route: 065

REACTIONS (2)
  - Kidney transplant rejection [Not Recovered/Not Resolved]
  - Off label use [Not Recovered/Not Resolved]
